FAERS Safety Report 4575709-X (Version None)
Quarter: 2005Q1

REPORT INFORMATION
  Report Type: 
  Country: None (occurrence: None)
  Receive Date: 20050209
  Receipt Date: 20050202
  Transmission Date: 20050727
  Serious: Yes (Death)
  Sender: FDA-Public Use
  Company Number: US-JNJFOC-20050201561

PATIENT
  Age: 14 Year
  Sex: Female

DRUGS (2)
  1. EXTRA STRENGTH TYLENOL [Suspect]
     Route: 049
  2. EXTRA STRENGTH TYLENOL [Suspect]
     Indication: DRUG USE FOR UNKNOWN INDICATION
     Dosage: UNKNOWN EXCESSIVE AMOUNT, ORAL
     Route: 049

REACTIONS (3)
  - BRAIN DEATH [None]
  - OVERDOSE [None]
  - RENAL FAILURE [None]
